FAERS Safety Report 8606967 (Version 4)
Quarter: 2013Q1

REPORT INFORMATION
  Report Type: Spontaneous
  Country: US (occurrence: US)
  Receive Date: 20120611
  Receipt Date: 20130205
  Transmission Date: 20140127
  Serious: No
  Sender: FDA-Public Use
  Company Number: US-BIOGENIDEC-2012BI020063

PATIENT
  Age: 57 None
  Sex: Female

DRUGS (1)
  1. TYSABRI [Suspect]
     Indication: MULTIPLE SCLEROSIS
     Route: 042
     Dates: start: 20111207

REACTIONS (11)
  - Pain [Recovered/Resolved]
  - Somnolence [Recovered/Resolved]
  - Feeling abnormal [Recovered/Resolved]
  - Sensation of heaviness [Recovered/Resolved]
  - Gait disturbance [Recovered/Resolved]
  - Emotional distress [Recovered/Resolved]
  - Pain in extremity [Unknown]
  - Anger [Recovered/Resolved]
  - Arthralgia [Recovered/Resolved]
  - Drug ineffective [Recovered/Resolved]
  - Multiple sclerosis relapse [Not Recovered/Not Resolved]
